FAERS Safety Report 8790379 (Version 1)
Quarter: 2012Q4

REPORT INFORMATION
  Report Type: 
  Country: SE (occurrence: SE)
  Receive Date: 20120917
  Receipt Date: 20120917
  Transmission Date: 20130627
  Serious: Yes (Other)
  Sender: FDA-Public Use
  Company Number: SE-JNJFOC-20120904943

PATIENT
  Age: 74 Year
  Sex: Female

DRUGS (11)
  1. REMICADE [Suspect]
     Indication: RHEUMATOID ARTHRITIS
     Route: 042
     Dates: start: 201105, end: 201109
  2. SIMVASTATIN [Concomitant]
     Route: 065
  3. SERTRALINE [Concomitant]
     Route: 065
  4. IMUREL [Concomitant]
     Route: 065
  5. DUROFERON [Concomitant]
     Route: 065
  6. TROMBYL [Concomitant]
     Route: 065
  7. PREDNISOLON [Concomitant]
     Route: 065
  8. KALCIPOS-D [Concomitant]
     Route: 065
  9. OMEPRAZOLE [Concomitant]
     Route: 065
  10. METOPROLOL [Concomitant]
     Route: 065
  11. FELODIPIN [Concomitant]
     Route: 065

REACTIONS (1)
  - Skin cancer [Not Recovered/Not Resolved]
